FAERS Safety Report 24307127 (Version 1)
Quarter: 2024Q3

REPORT INFORMATION
  Report Type: Report from Study
  Country: US (occurrence: US)
  Receive Date: 20240911
  Receipt Date: 20240911
  Transmission Date: 20241017
  Serious: Yes (Death, Hospitalization, Other)
  Sender: PFIZER
  Company Number: US-PFIZER INC-202300455302

PATIENT
  Age: 79 Year
  Sex: Female

DRUGS (20)
  1. IBRANCE [Suspect]
     Active Substance: PALBOCICLIB
     Dosage: 75 MG, CYCLIC (75MG 1 TABLET BY MOUTH EVERY OTHER DAY ON DAYS 1-21 OUT OF EVERY 28 DAYS)
     Route: 048
     Dates: start: 20210105
  2. IBRANCE [Suspect]
     Active Substance: PALBOCICLIB
     Dosage: 75 MG, CYCLIC (1 TABLET BY MOUTH EVERY OTHER DAY ON DAYS 1-21 OUT OF 28-DAYS)
     Route: 048
     Dates: start: 202206
  3. CALCIUM\VITAMIN D [Concomitant]
     Active Substance: CALCIUM\VITAMIN D
  4. COUMADIN [Concomitant]
     Active Substance: WARFARIN SODIUM
  5. .ALPHA.-ACETYLDIGOXIN [Concomitant]
     Active Substance: .ALPHA.-ACETYLDIGOXIN
  6. DULOXETINE [Concomitant]
     Active Substance: DULOXETINE
  7. FIBER THERAPY (CALCIUM POLYCARBOPHIL) [Concomitant]
     Active Substance: CALCIUM POLYCARBOPHIL
  8. FISH OIL [Concomitant]
     Active Substance: FISH OIL
  9. FULVESTRANT [Concomitant]
     Active Substance: FULVESTRANT
  10. GABAPENTIN [Concomitant]
     Active Substance: GABAPENTIN
  11. IRBESARTAN [Concomitant]
     Active Substance: IRBESARTAN
  12. LETROZOLE [Concomitant]
     Active Substance: LETROZOLE
  13. LEVOXYL [Concomitant]
     Active Substance: LEVOTHYROXINE SODIUM
  14. OMEPRAZOLE [Concomitant]
     Active Substance: OMEPRAZOLE
  15. ACETAMINOPHEN\OXYCODONE HYDROCHLORIDE\OXYCODONE TEREPHTHALATE [Concomitant]
     Active Substance: ACETAMINOPHEN\OXYCODONE HYDROCHLORIDE\OXYCODONE TEREPHTHALATE
  16. POTASSIUM CHLORIDE [Concomitant]
     Active Substance: POTASSIUM CHLORIDE
  17. SIMVASTATIN [Concomitant]
     Active Substance: SIMVASTATIN
  18. SPIRONOLACTONE [Concomitant]
     Active Substance: SPIRONOLACTONE
  19. TORSEMIDE [Concomitant]
     Active Substance: TORSEMIDE
  20. VITAMIN C [Concomitant]
     Active Substance: ASCORBIC ACID

REACTIONS (2)
  - Death [Fatal]
  - Cardiac valve disease [Unknown]
